FAERS Safety Report 6989362-9 (Version None)
Quarter: 2010Q3

REPORT INFORMATION
  Report Type: 
  Country: None (occurrence: None)
  Receive Date: 20100916
  Receipt Date: 20091126
  Transmission Date: 20110219
  Serious: Yes (Other)
  Sender: FDA-Public Use
  Company Number: BR-PFIZER INC-2009290279

PATIENT
  Sex: Female
  Weight: 68 kg

DRUGS (5)
  1. LYRICA [Suspect]
     Indication: PAIN IN EXTREMITY
     Dosage: 150 MG, UNK
     Route: 048
     Dates: start: 20091028
  2. EUTHYROX [Concomitant]
     Dosage: 75 MG, UNK
  3. PREMARIN [Concomitant]
     Dosage: UNK
  4. GLUCOSAMINE [Concomitant]
     Dosage: UNK
  5. CHONDROITIN [Concomitant]
     Dosage: UNK

REACTIONS (7)
  - CONFUSIONAL STATE [None]
  - DIARRHOEA [None]
  - DIZZINESS [None]
  - HYPERSOMNIA [None]
  - NAUSEA [None]
  - SPEECH DISORDER [None]
  - THROAT TIGHTNESS [None]
